FAERS Safety Report 8225092-3 (Version None)
Quarter: 2012Q1

REPORT INFORMATION
  Report Type: 
  Country: None (occurrence: None)
  Receive Date: 20120321
  Receipt Date: 20120319
  Transmission Date: 20120608
  Serious: Yes (Life-Threatening, Hospitalization, Other)
  Sender: FDA-Public Use
  Company Number: PHHY2011DE102925

PATIENT
  Age: 55 Year
  Sex: Male
  Weight: 83 kg

DRUGS (3)
  1. ZOLEDRONOC ACID [Suspect]
     Indication: OSTEOPOROSIS
     Dosage: 5 MG, ONCE
     Route: 042
     Dates: start: 20111115
  2. ASPIRIN [Concomitant]
     Dosage: 100 MG/DAY
     Route: 048
  3. MAGNESIUM VERLA [Concomitant]
     Dosage: 100 MG/DAY
     Route: 048

REACTIONS (13)
  - PAIN [None]
  - MYALGIA [None]
  - INFECTION [None]
  - INFLUENZA LIKE ILLNESS [None]
  - HEADACHE [None]
  - CHILLS [None]
  - C-REACTIVE PROTEIN INCREASED [None]
  - RED BLOOD CELL SEDIMENTATION RATE ABNORMAL [None]
  - PYREXIA [None]
  - CIRCULATORY COLLAPSE [None]
  - BLOOD TEST ABNORMAL [None]
  - GENERAL PHYSICAL HEALTH DETERIORATION [None]
  - PAIN IN EXTREMITY [None]
